FAERS Safety Report 20362536 (Version 1)
Quarter: 2022Q1

REPORT INFORMATION
  Report Type: Other
  Country: US (occurrence: None)
  Receive Date: 20220121
  Receipt Date: 20220121
  Transmission Date: 20220424
  Serious: Yes (Other)
  Sender: FDA-Public Use
  Company Number: US-ROCHE-3002039

PATIENT

DRUGS (1)
  1. BEVACIZUMAB [Suspect]
     Active Substance: BEVACIZUMAB
     Indication: Non-small cell lung cancer
     Route: 065

REACTIONS (5)
  - Pulmonary haemorrhage [Unknown]
  - Neutropenia [Unknown]
  - Liver injury [Unknown]
  - Anaphylactic reaction [Unknown]
  - Gastrointestinal perforation [Unknown]
